FAERS Safety Report 8391044-6 (Version None)
Quarter: 2012Q2

REPORT INFORMATION
  Report Type: 
  Country: None (occurrence: None)
  Receive Date: 20120529
  Receipt Date: 20120521
  Transmission Date: 20120825
  Serious: Yes (Life-Threatening, Hospitalization)
  Sender: FDA-Public Use
  Company Number: US-BAYER-2012-051550

PATIENT
  Age: 40 Year
  Sex: Female
  Weight: 84.1 kg

DRUGS (7)
  1. YAZ [Suspect]
     Indication: MENORRHAGIA
  2. HYDROCODONE BITARTRATE + ACETAMINOPHEN [Concomitant]
     Dosage: 5-325 MG
  3. ATENOLOL [Concomitant]
  4. SUMATRIPTAN [Concomitant]
     Dosage: 100 MG, UNK
  5. TOPAMAX [Concomitant]
     Dosage: 50 MG, UNK
  6. DROSPIRENONE AND ETHINYL ESTRADIOL [Suspect]
  7. ACETAMINOPHEN AND OXYCODONE HCL [Concomitant]
     Dosage: 7.5-325 TAB

REACTIONS (2)
  - PULMONARY EMBOLISM [None]
  - DEEP VEIN THROMBOSIS [None]
